FAERS Safety Report 11675777 (Version 3)
Quarter: 2015Q4

REPORT INFORMATION
  Report Type: Spontaneous
  Country: US (occurrence: US)
  Receive Date: 20151027
  Receipt Date: 20151110
  Transmission Date: 20160304
  Serious: No
  Sender: FDA-Public Use
  Company Number: US-ELI_LILLY_AND_COMPANY-US201007000214

PATIENT
  Age: 75 Year
  Sex: Female

DRUGS (12)
  1. FORTEO [Suspect]
     Active Substance: TERIPARATIDE
     Dosage: 20 UG, DAILY (1/D)
  2. BABY ASPIRIN [Concomitant]
     Active Substance: ASPIRIN
  3. CRESTOR [Concomitant]
     Active Substance: ROSUVASTATIN CALCIUM
  4. FORTEO [Suspect]
     Active Substance: TERIPARATIDE
     Dosage: 20 UG, QD
  5. NASONEX [Concomitant]
     Active Substance: MOMETASONE FUROATE
  6. CALCIUM CARBONATE. [Concomitant]
     Active Substance: CALCIUM CARBONATE
  7. FORTEO [Suspect]
     Active Substance: TERIPARATIDE
     Indication: BONE DENSITY ABNORMAL
     Dosage: 20 UG, DAILY (1/D)
     Dates: start: 200912
  8. FORTEO [Suspect]
     Active Substance: TERIPARATIDE
     Dosage: 20 UG, QD
  9. FORTEO [Suspect]
     Active Substance: TERIPARATIDE
     Dosage: 20 UG, DAILY (1/D)
  10. HUMALOG [Concomitant]
     Active Substance: INSULIN LISPRO
  11. ERGOCALCIFEROL. [Concomitant]
     Active Substance: ERGOCALCIFEROL
  12. VITAMINS [Concomitant]
     Active Substance: VITAMINS

REACTIONS (8)
  - Fall [Recovered/Resolved]
  - Pain in extremity [Unknown]
  - Skin mass [Not Recovered/Not Resolved]
  - Foot fracture [Unknown]
  - Contusion [Recovered/Resolved]
  - Sinus disorder [Recovering/Resolving]
  - Muscle spasms [Not Recovered/Not Resolved]
  - Peripheral swelling [Unknown]

NARRATIVE: CASE EVENT DATE: 201007
